FAERS Safety Report 5972312-1 (Version None)
Quarter: 2008Q4

REPORT INFORMATION
  Report Type: 
  Country: None (occurrence: None)
  Receive Date: 20081201
  Receipt Date: 20080924
  Transmission Date: 20090506
  Serious: No
  Sender: FDA-Public Use
  Company Number: US-TEVA-175307USA

PATIENT
  Age: 20 Month
  Sex: Male
  Weight: 13.62 kg

DRUGS (3)
  1. SALBUTAMOL SULFATE INHALATION, 0.09 MG [Suspect]
     Indication: ASTHMATIC CRISIS
     Dosage: 3-4 PUFFS AS NEEDED UP TO 3-4 TIMES/DAY
     Route: 055
  2. SALBUTAMOL SULFATE INHALATION, 0.09 MG [Suspect]
     Indication: UPPER RESPIRATORY TRACT INFECTION
  3. PREDNISONE TAB [Concomitant]
     Indication: ASTHMATIC CRISIS

REACTIONS (2)
  - AGITATION [None]
  - INSOMNIA [None]
